FAERS Safety Report 6592988-8 (Version None)
Quarter: 2010Q1

REPORT INFORMATION
  Report Type: 
  Country: None (occurrence: None)
  Receive Date: 20100212
  Receipt Date: 20100202
  Transmission Date: 20100710
  Serious: Yes (Death, Life-Threatening, Hospitalization)
  Sender: FDA-Public Use
  Company Number: 2010SP006216

PATIENT
  Age: 63 Year
  Sex: Male

DRUGS (2)
  1. TEMODAL [Suspect]
     Indication: GLIOBLASTOMA MULTIFORME
     Dosage: 150 MG/M2, 200 MG/M2
     Dates: start: 20090907, end: 20090911
  2. TEMODAL [Suspect]
     Indication: GLIOBLASTOMA MULTIFORME
     Dosage: 150 MG/M2, 200 MG/M2
     Dates: start: 20090414

REACTIONS (4)
  - CONDITION AGGRAVATED [None]
  - GLIOBLASTOMA MULTIFORME [None]
  - HAEMATOCRIT DECREASED [None]
  - KAPOSI'S SARCOMA [None]
